FAERS Safety Report 18480045 (Version 2)
Quarter: 2024Q3

REPORT INFORMATION
  Report Type: Spontaneous
  Country: JP (occurrence: JP)
  Receive Date: 20201109
  Receipt Date: 20240802
  Transmission Date: 20241017
  Serious: Yes (Hospitalization, Other)
  Sender: PFIZER
  Company Number: JP-PFIZER INC-2020424985

PATIENT
  Age: 65 Year
  Sex: Male

DRUGS (3)
  1. SULFASALAZINE [Suspect]
     Active Substance: SULFASALAZINE
     Indication: Abdominal pain
     Dosage: UNK
     Route: 048
  2. SULFASALAZINE [Suspect]
     Active Substance: SULFASALAZINE
     Indication: Colitis
  3. ALLOPURINOL [Suspect]
     Active Substance: ALLOPURINOL
     Indication: Hyperuricaemia
     Dosage: UNK
     Route: 048

REACTIONS (3)
  - Drug reaction with eosinophilia and systemic symptoms [Unknown]
  - Autoimmune thyroiditis [Unknown]
  - Off label use [Unknown]
